FAERS Safety Report 16806298 (Version 1)
Quarter: 2019Q3

REPORT INFORMATION
  Report Type: Spontaneous
  Country: US (occurrence: US)
  Receive Date: 20190913
  Receipt Date: 20190913
  Transmission Date: 20191005
  Serious: No
  Sender: FDA-Public Use
  Company Number: US-PERRIGO-18US010349

PATIENT
  Age: 39 Year
  Sex: Female
  Weight: 76.64 kg

DRUGS (2)
  1. MINOXIDIL. [Suspect]
     Active Substance: MINOXIDIL
     Indication: ALOPECIA
     Dosage: 1 ML, BID
     Route: 061
     Dates: start: 19990730, end: 20180926
  2. NEXIUM [Concomitant]
     Active Substance: ESOMEPRAZOLE MAGNESIUM
     Indication: DYSPEPSIA
     Dosage: UNK
     Route: 065
     Dates: start: 1998

REACTIONS (2)
  - Product administered at inappropriate site [Recovered/Resolved]
  - Application site folliculitis [Not Recovered/Not Resolved]

NARRATIVE: CASE EVENT DATE: 19990730
